FAERS Safety Report 6736876 (Version 3)
Quarter: 2018Q4

REPORT INFORMATION
  Report Type: Spontaneous
  Country: JP (occurrence: JP)
  Receive Date: 20080826
  Receipt Date: 20181101
  Transmission Date: 20190205
  Serious: Yes (Hospitalization)
  Sender: FDA-Public Use
  Company Number: PHHY2008JP18689

PATIENT
  Age: 58 Year
  Sex: Male

DRUGS (9)
  1. FP [Concomitant]
     Active Substance: SELEGILINE HYDROCHLORIDE
     Indication: PARKINSON^S DISEASE
     Dosage: 5 MG, QD
     Route: 048
     Dates: start: 20050921, end: 20080815
  2. PRAMIPEXOLE DIHYDROCHLORIDE. [Concomitant]
     Active Substance: PRAMIPEXOLE DIHYDROCHLORIDE
     Indication: PARKINSON^S DISEASE
     Dosage: 1.5 MG, QD
     Route: 048
     Dates: start: 20070612
  3. NEO DOPASTON [Concomitant]
     Indication: PARKINSON^S DISEASE
     Dosage: 700 MG, QD
     Route: 048
     Dates: start: 1994
  4. SEVEN EP [Concomitant]
     Indication: ABDOMINAL DISCOMFORT
     Dosage: 3 DF, QD
     Route: 048
     Dates: start: 19971120, end: 20080815
  5. GASMOTIN [Concomitant]
     Active Substance: MOSAPRIDE CITRATE
     Indication: ABDOMINAL DISCOMFORT
     Dosage: 15 MG, QD
     Route: 048
     Dates: start: 20070710
  6. WYPAX [Concomitant]
     Active Substance: LORAZEPAM
     Indication: INSOMNIA
     Dosage: 0.5 MG, QD
     Route: 048
     Dates: start: 20071207, end: 20080815
  7. MAGLAX [Concomitant]
     Active Substance: MAGNESIUM OXIDE
     Indication: CONSTIPATION
     Dosage: 2250 MG, QD
     Route: 048
     Dates: start: 20060425
  8. COMTAN [Suspect]
     Active Substance: ENTACAPONE
     Indication: PARKINSON^S DISEASE
     Dosage: 100 MG, 7QD
     Route: 048
     Dates: start: 20080725, end: 20080815
  9. SYMMETREL [Concomitant]
     Active Substance: AMANTADINE HYDROCHLORIDE
     Indication: PARKINSON^S DISEASE
     Dosage: 150 MG, QD
     Route: 048
     Dates: start: 1994, end: 20080815

REACTIONS (12)
  - Feeling abnormal [Recovering/Resolving]
  - Extubation [Recovering/Resolving]
  - Coma scale abnormal [Recovering/Resolving]
  - Altered state of consciousness [Recovering/Resolving]
  - Blood creatine phosphokinase decreased [Recovering/Resolving]
  - Blood sodium decreased [Recovered/Resolved]
  - Endotracheal intubation [Recovering/Resolving]
  - Gait disturbance [Recovering/Resolving]
  - Body temperature increased [Not Recovered/Not Resolved]
  - Heat illness [Recovering/Resolving]
  - Hyponatraemia [Recovered/Resolved]
  - Neuroleptic malignant syndrome [Recovering/Resolving]

NARRATIVE: CASE EVENT DATE: 20080814
